FAERS Safety Report 5481105-3 (Version None)
Quarter: 2007Q4

REPORT INFORMATION
  Report Type: 
  Country: None (occurrence: None)
  Receive Date: 20071003
  Receipt Date: 20061030
  Transmission Date: 20080405
  Serious: Yes (Other)
  Sender: FDA-Public Use
  Company Number: 6027066

PATIENT
  Age: 38 Year
  Sex: Male

DRUGS (6)
  1. SERTRALINE [Suspect]
     Indication: DEPRESSION
     Dosage: 50,000 MG
  2. ESCITALOPRAM OXALATE [Suspect]
     Indication: DEPRESSIVE SYMPTOM
  3. TIANEPTINE (TIANEPTINE) [Suspect]
     Indication: DEPRESSION
     Dosage: 12,5000 MG (12,5 MG, TITRATED UP TO 37.5 MG); 37,5000 MG (37,5 1 IN 1 D)
  4. BIPERIDEN HYDROCHLORIDE TAB [Concomitant]
  5. LORAZEPAM [Concomitant]
  6. BUPROPION HCL [Concomitant]

REACTIONS (5)
  - EXTRAPYRAMIDAL DISORDER [None]
  - MAJOR DEPRESSION [None]
  - PARKINSONISM [None]
  - RESTLESSNESS [None]
  - TREMOR [None]
